FAERS Safety Report 4512888-4 (Version None)
Quarter: 2004Q4

REPORT INFORMATION
  Report Type: 
  Country: None (occurrence: None)
  Receive Date: 20041118
  Receipt Date: 20041118
  Transmission Date: 20050328
  Serious: Yes (Disabling)
  Sender: FDA-Public Use
  Company Number: None

PATIENT
  Age: 42 Year
  Sex: Female
  Weight: 49.8957 kg

DRUGS (7)
  1. SEROQUEL [Suspect]
     Dosage: 100 MG QD PO; 200MG QD, PO
     Route: 048
     Dates: start: 20020801, end: 20021001
  2. SEROQUEL [Suspect]
     Dosage: 100 MG QD PO; 200MG QD, PO
     Route: 048
     Dates: start: 20021001, end: 20030501
  3. .. [Concomitant]
  4. LAC-HYDRIN 12% [Concomitant]
  5. SYNTHROID [Concomitant]
  6. TAMPON USE [Concomitant]
  7. CELEXA [Concomitant]

REACTIONS (3)
  - NERVOUS SYSTEM DISORDER [None]
  - SENSORY DISTURBANCE [None]
  - VISUAL ACUITY REDUCED [None]
